FAERS Safety Report 11870670 (Version 1)
Quarter: 2015Q4

REPORT INFORMATION
  Report Type: Spontaneous
  Country: None (occurrence: None)
  Receive Date: 20151223
  Receipt Date: 20151223
  Transmission Date: 20160305
  Serious: Yes (Hospitalization)
  Sender: FDA-Public Use
  Company Number: None

PATIENT
  Age: 51 Year
  Sex: Female
  Weight: 88.9 kg

DRUGS (19)
  1. DOXYCYCLINE. [Concomitant]
     Active Substance: DOXYCYCLINE
  2. TRAMADOL. [Concomitant]
     Active Substance: TRAMADOL
  3. DRONABINOL. [Concomitant]
     Active Substance: DRONABINOL
  4. FERRALET [Concomitant]
  5. CANAGLIFLOZIN [Concomitant]
     Active Substance: CANAGLIFLOZIN
  6. METFORMIN [Concomitant]
     Active Substance: METFORMIN HYDROCHLORIDE
  7. NOVOLIN [Concomitant]
     Active Substance: INSULIN HUMAN
  8. ONDANSETRON [Concomitant]
     Active Substance: ONDANSETRON
  9. VITAMIN D2 [Concomitant]
     Active Substance: ERGOCALCIFEROL
  10. AZASITE [Concomitant]
     Active Substance: AZITHROMYCIN MONOHYDRATE
  11. GABAPENTIN. [Concomitant]
     Active Substance: GABAPENTIN
  12. SENNALAX-S [Concomitant]
     Active Substance: DOCUSATE SODIUM\SENNOSIDES
  13. OMEPRAZOLE. [Concomitant]
     Active Substance: OMEPRAZOLE
  14. CANAGLIFLOZIN 100 MG JANSSEN [Suspect]
     Active Substance: CANAGLIFLOZIN
     Indication: TYPE 2 DIABETES MELLITUS
     Route: 048
  15. CAPECITABINE. [Concomitant]
     Active Substance: CAPECITABINE
  16. ENTECAVIR. [Concomitant]
     Active Substance: ENTECAVIR
  17. ACETAMINOPHEN-HYDROCODONE [Concomitant]
  18. DEXAMETHASONE. [Concomitant]
     Active Substance: DEXAMETHASONE
  19. PREDNISOLONE. [Concomitant]
     Active Substance: PREDNISOLONE

REACTIONS (4)
  - Urine ketone body present [None]
  - Urinary tract infection [None]
  - Metabolic acidosis [None]
  - No therapeutic response [None]

NARRATIVE: CASE EVENT DATE: 20150917
